FAERS Safety Report 24362371 (Version 1)
Quarter: 2024Q3

REPORT INFORMATION
  Report Type: Spontaneous
  Country: US (occurrence: None)
  Receive Date: 20240925
  Receipt Date: 20240925
  Transmission Date: 20241017
  Serious: Yes (Death)
  Sender: Public
  Company Number: None

PATIENT
  Age: 58 Year
  Sex: Male

DRUGS (1)
  1. BORTEZOMIB [Suspect]
     Active Substance: BORTEZOMIB
     Indication: Plasma cell myeloma
     Dosage: OTHER FREQUENCY : DAYS 1, 4, 8, AND 11 OF EVERY 21 DAY CYCLE;?
     Dates: start: 20240904

REACTIONS (1)
  - Death [None]

NARRATIVE: CASE EVENT DATE: 20240906
